FAERS Safety Report 6988063-0 (Version None)
Quarter: 2010Q3

REPORT INFORMATION
  Report Type: 
  Country: None (occurrence: None)
  Receive Date: 20100916
  Receipt Date: 20100913
  Transmission Date: 20110219
  Serious: Yes (Other)
  Sender: FDA-Public Use
  Company Number: A0880962A

PATIENT
  Age: 45 Year
  Sex: Female

DRUGS (5)
  1. LAMICTAL [Suspect]
     Dosage: 150MG TWICE PER DAY
     Route: 065
     Dates: start: 20100101
  2. SEROQUEL [Concomitant]
  3. NORTRIPTYLINE HCL [Concomitant]
  4. PROPRANOLOL [Concomitant]
  5. UNKNOWN MEDICATION [Concomitant]

REACTIONS (1)
  - SYSTEMIC LUPUS ERYTHEMATOSUS [None]
